FAERS Safety Report 11320075 (Version 1)
Quarter: 2015Q3

REPORT INFORMATION
  Report Type: Spontaneous
  Country: US (occurrence: None)
  Receive Date: 20150728
  Receipt Date: 20150728
  Transmission Date: 20151125
  Serious: Yes (Hospitalization)
  Sender: FDA-Public Use
  Company Number: None

PATIENT
  Age: 72 Year
  Sex: Male

DRUGS (12)
  1. PENTOSAN POLYSULFATE SODIUM [Concomitant]
     Active Substance: PENTOSAN POLYSULFATE SODIUM
  2. CALCIUM GLUCONATE. [Concomitant]
     Active Substance: CALCIUM GLUCONATE
  3. INSULIN ASPART [Concomitant]
     Active Substance: INSULIN ASPART
  4. LACTULOSE. [Concomitant]
     Active Substance: LACTULOSE
  5. METHYLPREDNISOLONE. [Concomitant]
     Active Substance: METHYLPREDNISOLONE
  6. ACETAMINOPHEN. [Concomitant]
     Active Substance: ACETAMINOPHEN
  7. HEPARIN [Concomitant]
     Active Substance: HEPARIN SODIUM
  8. HYDROMORPHONE [Concomitant]
     Active Substance: HYDROMORPHONE
  9. RASBURICASE [Suspect]
     Active Substance: RASBURICASE
     Indication: HYPERURICAEMIA
     Route: 042
     Dates: start: 20150310, end: 20150310
  10. DEXTROSE. [Concomitant]
     Active Substance: DEXTROSE
  11. FUROSEMIDE. [Concomitant]
     Active Substance: FUROSEMIDE
  12. LORAZEPAM. [Concomitant]
     Active Substance: LORAZEPAM

REACTIONS (2)
  - Oxygen saturation decreased [None]
  - Methaemoglobinaemia [None]

NARRATIVE: CASE EVENT DATE: 20150311
